FAERS Safety Report 11518384 (Version 1)
Quarter: 2015Q3

REPORT INFORMATION
  Report Type: Spontaneous
  Country: US (occurrence: US)
  Receive Date: 20150917
  Receipt Date: 20150917
  Transmission Date: 20151125
  Serious: No
  Sender: FDA-Public Use
  Company Number: US-INVAGEN PHARMACEUTICALS, INC.-1042051

PATIENT
  Age: 69 Year
  Sex: Female

DRUGS (2)
  1. CYCLOBENZAPRINE HCL [Suspect]
     Active Substance: CYCLOBENZAPRINE HYDROCHLORIDE
     Route: 048
  2. LEVOTHYROXINE SODIUM. [Concomitant]
     Active Substance: LEVOTHYROXINE SODIUM
     Route: 048
     Dates: start: 20150323

REACTIONS (1)
  - Back pain [Unknown]

NARRATIVE: CASE EVENT DATE: 20150404
